FAERS Safety Report 25273116 (Version 1)
Quarter: 2025Q2

REPORT INFORMATION
  Report Type: Spontaneous
  Country: US (occurrence: None)
  Receive Date: 20250505
  Receipt Date: 20250505
  Transmission Date: 20250716
  Serious: Yes (Hospitalization)
  Sender: FDA-CTU
  Company Number: None

PATIENT
  Age: 73 Year
  Sex: Female

DRUGS (3)
  1. TAVNEOS [Suspect]
     Active Substance: AVACOPAN
     Dosage: FREQUENCY : TWICE A DAY;?
     Route: 048
     Dates: start: 20250411
  2. PREDNISONE [Suspect]
     Active Substance: PREDNISONE
     Dates: start: 20250411
  3. TOLVAPTAN [Suspect]
     Active Substance: TOLVAPTAN

REACTIONS (6)
  - Asthenia [None]
  - Nausea [None]
  - Confusional state [None]
  - Tremor [None]
  - Dizziness [None]
  - Weight decreased [None]

NARRATIVE: CASE EVENT DATE: 20250505
